FAERS Safety Report 23854356 (Version 1)
Quarter: 2024Q2

REPORT INFORMATION
  Report Type: Spontaneous
  Country: US (occurrence: None)
  Receive Date: 20240514
  Receipt Date: 20240514
  Transmission Date: 20240716
  Serious: No
  Sender: FDA-Public Use
  Company Number: None

PATIENT
  Age: 67 Year
  Sex: Female
  Weight: 68.04 kg

DRUGS (1)
  1. ODOMZO [Suspect]
     Active Substance: SONIDEGIB
     Indication: Basal cell carcinoma
     Dosage: FREQUENCY : DAILY;?ON AN EMPTY STOMACH AT LEAST 1 HOUR BEFORE OR 2 HOURS AFTER
     Route: 048
     Dates: start: 202403

REACTIONS (5)
  - Vomiting [None]
  - Blood potassium increased [None]
  - Taste disorder [None]
  - Gait disturbance [None]
  - Therapy interrupted [None]
